FAERS Safety Report 23629896 (Version 2)
Quarter: 2024Q1

REPORT INFORMATION
  Report Type: Spontaneous
  Country: US (occurrence: US)
  Receive Date: 20240314
  Receipt Date: 20240314
  Transmission Date: 20240409
  Serious: No
  Sender: FDA-Public Use
  Company Number: US-ASTELLAS-2023US026201

PATIENT
  Sex: Female

DRUGS (2)
  1. CRESEMBA [Suspect]
     Active Substance: ISAVUCONAZONIUM SULFATE
     Indication: Aspergillus infection
     Dosage: 372 MG, ONCE DAILY (186MGX2 CAPSULES PER DAY)
     Route: 065
     Dates: start: 2023
  2. CRESEMBA [Suspect]
     Active Substance: ISAVUCONAZONIUM SULFATE
     Route: 065
     Dates: start: 202309

REACTIONS (12)
  - Brain fog [Unknown]
  - Thinking abnormal [Unknown]
  - Abnormal faeces [Unknown]
  - Fatigue [Not Recovered/Not Resolved]
  - Diarrhoea [Not Recovered/Not Resolved]
  - Eye swelling [Unknown]
  - Ocular discomfort [Unknown]
  - Parosmia [Unknown]
  - Sinus congestion [Unknown]
  - Headache [Not Recovered/Not Resolved]
  - Lethargy [Unknown]
  - Therapeutic product effect incomplete [Unknown]

NARRATIVE: CASE EVENT DATE: 20230801
